FAERS Safety Report 11884745 (Version 1)
Quarter: 2016Q1

REPORT INFORMATION
  Report Type: Spontaneous
  Country: US (occurrence: US)
  Receive Date: 20160104
  Receipt Date: 20160104
  Transmission Date: 20160526
  Serious: Yes (Hospitalization)
  Sender: FDA-Public Use
  Company Number: US-ACCORD-036802

PATIENT
  Age: 66 Year
  Sex: Male

DRUGS (1)
  1. MITOMYCIN. [Suspect]
     Active Substance: MITOMYCIN
     Indication: METASTASIS
     Dosage: MMC INFUSION ADMINISTERED FOR 60 MINUTES FOLLOWED BY 10 MG FOR 40 MINUTES
     Route: 033

REACTIONS (1)
  - Scrotal ulcer [Recovered/Resolved]
